FAERS Safety Report 12598877 (Version 3)
Quarter: 2016Q3

REPORT INFORMATION
  Report Type: Spontaneous
  Country: US (occurrence: US)
  Receive Date: 20160726
  Receipt Date: 20160824
  Transmission Date: 20161109
  Serious: Yes (Death, Hospitalization, Other)
  Sender: FDA-Public Use
  Company Number: US-LUNDBECK-DKLU2016792

PATIENT
  Sex: Male
  Weight: 86 kg

DRUGS (4)
  1. NORTHERA [Suspect]
     Active Substance: DROXIDOPA
     Dosage: TITRATION
     Route: 048
     Dates: end: 201607
  2. NORTHERA [Suspect]
     Active Substance: DROXIDOPA
     Indication: ORTHOSTATIC HYPOTENSION
     Route: 048
     Dates: start: 20160516
  3. NORTHERA [Suspect]
     Active Substance: DROXIDOPA
     Indication: AUTONOMIC FAILURE SYNDROME
     Dosage: TITRATION
     Route: 048
     Dates: end: 201607
  4. NORTHERA [Suspect]
     Active Substance: DROXIDOPA
     Indication: AUTONOMIC NEUROPATHY
     Dosage: TITRATION
     Route: 048
     Dates: start: 201601

REACTIONS (9)
  - Condition aggravated [Fatal]
  - Troponin increased [Unknown]
  - Drug ineffective [Unknown]
  - Nephropathy [Fatal]
  - Cardiac failure congestive [Unknown]
  - Cerebrovascular accident [Unknown]
  - Atrial flutter [Unknown]
  - Atrial fibrillation [Unknown]
  - Blood potassium increased [Unknown]

NARRATIVE: CASE EVENT DATE: 2016
